FAERS Safety Report 10045390 (Version 2)
Quarter: 2014Q1

REPORT INFORMATION
  Report Type: Spontaneous
  Country: BR (occurrence: BR)
  Receive Date: 20140328
  Receipt Date: 20140328
  Transmission Date: 20141002
  Serious: Yes (Hospitalization, Other)
  Sender: FDA-Public Use
  Company Number: BR-DSJP-DSJ-2014-02477

PATIENT
  Sex: 0

DRUGS (6)
  1. OLMESARTAN MEDOXOMIL [Suspect]
     Indication: HYPERTENSION
     Dosage: 40 MG, QD
     Route: 048
     Dates: start: 2011
  2. AMLODIPINE [Suspect]
     Indication: HYPERTENSION
     Dosage: 5MG/DAY
     Route: 048
     Dates: start: 2011
  3. CILOSTAZOL [Concomitant]
     Dosage: UNK
     Route: 065
  4. GLIMEPIRIDE [Concomitant]
     Dosage: UNK
     Route: 065
  5. VITAMIN C                          /00008001/ [Concomitant]
     Dosage: UNK
     Route: 065
  6. OLANZAPINE [Concomitant]
     Dosage: UNK
     Route: 065

REACTIONS (13)
  - Neoplasm malignant [Not Recovered/Not Resolved]
  - Urinary tract infection [Unknown]
  - Asthenia [Unknown]
  - Anxiety [Unknown]
  - Anxiety [Unknown]
  - Body height decreased [Not Recovered/Not Resolved]
  - Cachexia [Not Recovered/Not Resolved]
  - Urine odour abnormal [Not Recovered/Not Resolved]
  - Dysphagia [Not Recovered/Not Resolved]
  - Drug administration error [Unknown]
  - Wrong technique in drug usage process [Unknown]
  - Transient ischaemic attack [Recovered/Resolved]
  - Blood pressure decreased [Recovered/Resolved]
